FAERS Safety Report 15134680 (Version 8)
Quarter: 2021Q3

REPORT INFORMATION
  Report Type: Report from Study
  Country: CA (occurrence: CA)
  Receive Date: 20180712
  Receipt Date: 20210910
  Transmission Date: 20211014
  Serious: Yes (Other)
  Sender: FDA-Public Use
  Company Number: PHHY2018CA043326

PATIENT
  Age: 58 Year
  Sex: Female

DRUGS (6)
  1. IBRANCE [Concomitant]
     Active Substance: PALBOCICLIB
     Indication: CHEMOTHERAPY
     Dosage: UNK
     Route: 065
  2. FENTANYL. [Concomitant]
     Active Substance: FENTANYL
     Indication: PRODUCT USED FOR UNKNOWN INDICATION
     Dosage: UNK
     Route: 062
  3. PREDNISONE. [Concomitant]
     Active Substance: PREDNISONE
     Indication: PRODUCT USED FOR UNKNOWN INDICATION
     Route: 065
  4. PAMIDRONATE [Concomitant]
     Active Substance: PAMIDRONATE DISODIUM
     Indication: BREAST CANCER METASTATIC
     Dosage: UNK
     Route: 042
     Dates: end: 20080208
  5. ZOMETA [Suspect]
     Active Substance: ZOLEDRONIC ACID
     Indication: BREAST CANCER METASTATIC
     Dosage: 4 MG, Q16 WEEKS
     Route: 030
     Dates: start: 20100316
  6. BENADRYL [Concomitant]
     Active Substance: DIPHENHYDRAMINE HYDROCHLORIDE
     Indication: PRODUCT USED FOR UNKNOWN INDICATION
     Route: 065

REACTIONS (10)
  - Metastases to bone [Unknown]
  - Inappropriate schedule of product administration [Unknown]
  - Musculoskeletal chest pain [Unknown]
  - Urinary tract infection [Not Recovered/Not Resolved]
  - Bone fragmentation [Unknown]
  - Malaise [Unknown]
  - Osteonecrosis of jaw [Recovered/Resolved]
  - Back pain [Unknown]
  - Contrast media allergy [Unknown]
  - Pain in jaw [Not Recovered/Not Resolved]

NARRATIVE: CASE EVENT DATE: 201904
